FAERS Safety Report 18943926 (Version 1)
Quarter: 2021Q1

REPORT INFORMATION
  Report Type: Report from Study
  Country: BR (occurrence: BR)
  Receive Date: 20210226
  Receipt Date: 20210226
  Transmission Date: 20210420
  Serious: Yes (Other)
  Sender: FDA-Public Use
  Company Number: BR-TEVA-2021-BR-1884247

PATIENT
  Age: 51 Year
  Sex: Female

DRUGS (3)
  1. DULOXETINE 70MG [Concomitant]
  2. COPAXONE [Suspect]
     Active Substance: GLATIRAMER ACETATE
     Dosage: STARTED BETWEEN SEP?OCT/2020
     Route: 065
     Dates: start: 2020
  3. DIOVAN 160MG [Concomitant]

REACTIONS (20)
  - Asphyxia [Recovered/Resolved]
  - Weight decreased [Not Recovered/Not Resolved]
  - Back pain [Recovered/Resolved]
  - Anosmia [Not Recovered/Not Resolved]
  - Dyspnoea [Recovered/Resolved]
  - Visual impairment [Recovered/Resolved]
  - Erythema [Recovered/Resolved]
  - Cyanosis [Recovered/Resolved]
  - Tachycardia [Recovered/Resolved]
  - Headache [Recovered/Resolved]
  - Eye pain [Recovered/Resolved]
  - Asthenia [Recovered/Resolved]
  - Chest discomfort [Recovered/Resolved]
  - COVID-19 [Recovered/Resolved with Sequelae]
  - Diarrhoea [Recovered/Resolved]
  - Ageusia [Not Recovered/Not Resolved]
  - Pyrexia [Recovered/Resolved]
  - Feeling cold [Recovered/Resolved]
  - Malaise [Recovered/Resolved]
  - Feeling abnormal [Recovered/Resolved]

NARRATIVE: CASE EVENT DATE: 202101
